FAERS Safety Report 15092090 (Version 3)
Quarter: 2018Q4

REPORT INFORMATION
  Report Type: Report from Study
  Country: US (occurrence: US)
  Receive Date: 20180629
  Receipt Date: 20181001
  Transmission Date: 20190204
  Serious: Yes (Hospitalization, Other)
  Sender: FDA-Public Use
  Company Number: US-MYLANLABS-2018M1045816

PATIENT
  Sex: Female
  Weight: 118 kg

DRUGS (1)
  1. GLATIRAMER ACETATE INJECTION [Suspect]
     Active Substance: GLATIRAMER ACETATE
     Indication: RELAPSING-REMITTING MULTIPLE SCLEROSIS
     Dosage: 40 MG, 3XW
     Route: 058
     Dates: start: 201801, end: 2018

REACTIONS (14)
  - Rash [Unknown]
  - Herpes zoster [Unknown]
  - Infected bite [Unknown]
  - Infection [Unknown]
  - Arthritis bacterial [Recovering/Resolving]
  - Multiple sclerosis relapse [Unknown]
  - Paraesthesia [Not Recovered/Not Resolved]
  - Chest discomfort [Unknown]
  - Bladder disorder [Unknown]
  - Feeling abnormal [Recovered/Resolved]
  - Hypoaesthesia [Not Recovered/Not Resolved]
  - Myocardial infarction [Unknown]
  - Swelling [Unknown]
  - Arthropod bite [Unknown]
